FAERS Safety Report 23738951 (Version 1)
Quarter: 2024Q2

REPORT INFORMATION
  Report Type: Spontaneous
  Country: US (occurrence: US)
  Receive Date: 20240413
  Receipt Date: 20240413
  Transmission Date: 20240716
  Serious: No
  Sender: FDA-Public Use
  Company Number: US-TEVA-VS-3177082

PATIENT

DRUGS (1)
  1. HYDROXOCOBALAMIN [Suspect]
     Active Substance: HYDROXOCOBALAMIN
     Indication: Metabolic disorder
     Dosage: 1000 MCG/ML
     Route: 030

REACTIONS (2)
  - Metabolic function test abnormal [Unknown]
  - Product availability issue [Unknown]
